FAERS Safety Report 7369998-6 (Version None)
Quarter: 2011Q1

REPORT INFORMATION
  Report Type: 
  Country: None (occurrence: None)
  Receive Date: 20110323
  Receipt Date: 20110309
  Transmission Date: 20110831
  Serious: Yes (Other)
  Sender: FDA-Public Use
  Company Number: PHHY2011US19537

PATIENT
  Sex: Female
  Weight: 73 kg

DRUGS (1)
  1. EXJADE [Suspect]
     Indication: SICKLE CELL ANAEMIA
     Dosage: 3000 MG
     Route: 048
     Dates: start: 20100125

REACTIONS (2)
  - LIVER DISORDER [None]
  - RENAL DISORDER [None]
